FAERS Safety Report 7168329-4 (Version None)
Quarter: 2010Q4

REPORT INFORMATION
  Report Type: 
  Country: None (occurrence: None)
  Receive Date: 20101216
  Receipt Date: 20101208
  Transmission Date: 20110411
  Serious: Yes (Other)
  Sender: FDA-Public Use
  Company Number: US-ABBOTT-10P-163-0690552-00

PATIENT
  Sex: Male
  Weight: 64.468 kg

DRUGS (4)
  1. DEPAKOTE ER [Suspect]
     Indication: BIPOLAR DISORDER
     Dosage: 1500 MG
     Dates: start: 20050101
  2. EPZICOM [Interacting]
     Indication: HIV INFECTION
     Dosage: ABACAVIR SULFATE 600/LAMIVUDINE 300
  3. TRIPLA [Interacting]
     Indication: HIV INFECTION
     Dates: start: 20100905, end: 20100905
  4. SUSTIVA [Concomitant]
     Indication: HIV INFECTION
     Dosage: 600 MG

REACTIONS (17)
  - ANXIETY [None]
  - CHEST PAIN [None]
  - CONVULSION [None]
  - DRUG INTERACTION [None]
  - DRUG LEVEL INCREASED [None]
  - DYSARTHRIA [None]
  - DYSPNOEA [None]
  - EAR INFECTION [None]
  - HIV INFECTION [None]
  - MUSCLE ATROPHY [None]
  - NAUSEA [None]
  - NECK PAIN [None]
  - ROAD TRAFFIC ACCIDENT [None]
  - SOMNOLENCE [None]
  - TACHYCARDIA [None]
  - TREMOR [None]
  - WEIGHT DECREASED [None]
